FAERS Safety Report 15342372 (Version 1)
Quarter: 2018Q4

REPORT INFORMATION
  Report Type: Spontaneous
  Country: ES (occurrence: ES)
  Receive Date: 20180902
  Receipt Date: 20180902
  Transmission Date: 20190204
  Serious: Yes (Life-Threatening, Hospitalization)
  Sender: FDA-Public Use
  Company Number: PHHY2018ES044572

PATIENT
  Age: 48 Year
  Sex: Male

DRUGS (3)
  1. NOLOTIL (METAMIZOLE MAGNESIUM) [Interacting]
     Active Substance: METAMIZOLE MAGNESIUM
     Indication: PAIN
     Dosage: 6 G, QD
     Route: 048
     Dates: start: 20161014, end: 20161103
  2. FORTECORTIN [Interacting]
     Active Substance: DEXAMETHASONE
     Indication: PRODUCT USED FOR UNKNOWN INDICATION
     Dosage: 4 MG, QD
     Route: 048
     Dates: start: 20161021, end: 20161103
  3. IBUPROFENO [Suspect]
     Active Substance: IBUPROFEN
     Indication: PAIN
     Dosage: 1.8 G, QD
     Route: 048
     Dates: start: 20161014, end: 20161103

REACTIONS (2)
  - Drug interaction [Unknown]
  - Upper gastrointestinal haemorrhage [Recovered/Resolved]

NARRATIVE: CASE EVENT DATE: 20161101
